FAERS Safety Report 9176471 (Version 1)
Quarter: 2013Q1

REPORT INFORMATION
  Report Type: Report from Study
  Country: US (occurrence: US)
  Receive Date: 20130321
  Receipt Date: 20130321
  Transmission Date: 20140127
  Serious: No
  Sender: FDA-Public Use
  Company Number: US-009507513-1303USA003346

PATIENT
  Age: 59 Year
  Sex: Male

DRUGS (8)
  1. VICTRELIS [Suspect]
     Indication: HEPATITIS C
     Dosage: 800 MG, UNK
     Route: 048
     Dates: start: 20110715, end: 20120517
  2. VICTRELIS [Suspect]
     Indication: HEPATIC CIRRHOSIS
  3. RIBASPHERE [Suspect]
     Indication: HEPATITIS C
     Dosage: 1200 MG, QD
     Route: 048
     Dates: start: 20110617, end: 201111
  4. RIBASPHERE [Suspect]
     Indication: HEPATIC CIRRHOSIS
     Dosage: 1000 MG, QD
     Route: 048
     Dates: start: 201111, end: 20120511
  5. RIBASPHERE [Suspect]
     Dosage: 800 MG, QD
     Route: 048
     Dates: start: 20120617
  6. PEGASYS [Suspect]
     Indication: HEPATITIS C
     Dosage: 1200 MG, QD
     Dates: start: 20110617, end: 201111
  7. PEGASYS [Suspect]
     Indication: HEPATIC CIRRHOSIS
     Dosage: 1000 MG, QD
     Dates: start: 201111, end: 20120511
  8. PEGASYS [Suspect]
     Dosage: 800 MG, QD
     Dates: start: 20120617

REACTIONS (11)
  - Contusion [Recovered/Resolved]
  - Anaemia [Unknown]
  - Nausea [Recovered/Resolved]
  - Haemoglobin decreased [Unknown]
  - Decreased appetite [Unknown]
  - White blood cell count decreased [Unknown]
  - Platelet count decreased [Unknown]
  - Red blood cell count decreased [Recovered/Resolved]
  - Pruritus [Unknown]
  - Erythema [Unknown]
  - Weight decreased [Recovered/Resolved]
